FAERS Safety Report 7742007-2 (Version None)
Quarter: 2011Q3

REPORT INFORMATION
  Report Type: 
  Country: None (occurrence: None)
  Receive Date: 20110912
  Receipt Date: 20110830
  Transmission Date: 20111222
  Serious: Yes (Death, Hospitalization)
  Sender: FDA-Public Use
  Company Number: BR-JNJFOC-20110900753

PATIENT
  Age: 60 Year
  Sex: Male

DRUGS (6)
  1. ISONIAZID [Concomitant]
     Indication: ANTIBIOTIC PROPHYLAXIS
     Dosage: TREATMENT DURATION: 9 MONTHS; INITIATED 3 MONTHS BEFORE INFLIXIMAB THERAPY
     Route: 065
  2. INFLIXIMAB, RECOMBINANT [Suspect]
     Dosage: 14TH DOSE
     Route: 042
  3. METHOTREXATE [Concomitant]
     Route: 048
  4. INFLIXIMAB, RECOMBINANT [Suspect]
     Indication: PSORIATIC ARTHROPATHY
     Dosage: 14TH DOSE
     Route: 042
  5. INFLIXIMAB, RECOMBINANT [Suspect]
     Dosage: WEEK 0, 2 AND 6
     Route: 042
  6. INFLIXIMAB, RECOMBINANT [Suspect]
     Indication: PSORIASIS
     Dosage: WEEK 0, 2 AND 6
     Route: 042

REACTIONS (8)
  - SEPTIC SHOCK [None]
  - PNEUMONIA [None]
  - CANDIDA TEST POSITIVE [None]
  - RESPIRATORY FAILURE [None]
  - ADRENAL INSUFFICIENCY [None]
  - LEPROSY [None]
  - HERPES ZOSTER [None]
  - KLEBSIELLA TEST POSITIVE [None]
